FAERS Safety Report 6271111-3 (Version None)
Quarter: 2009Q3

REPORT INFORMATION
  Report Type: 
  Country: None (occurrence: None)
  Receive Date: 20090716
  Receipt Date: 20090708
  Transmission Date: 20100115
  Serious: Yes (Other)
  Sender: FDA-Public Use
  Company Number: US-AMGEN-QUU353173

PATIENT
  Sex: Female

DRUGS (2)
  1. ENBREL [Suspect]
     Indication: RHEUMATOID ARTHRITIS
     Route: 058
     Dates: start: 20061101, end: 20090501
  2. ENBREL [Suspect]
     Indication: PSORIASIS

REACTIONS (17)
  - ANTINUCLEAR ANTIBODY POSITIVE [None]
  - BLOOD THYROID STIMULATING HORMONE INCREASED [None]
  - CHEST PAIN [None]
  - CHRONIC OBSTRUCTIVE PULMONARY DISEASE [None]
  - CRYOGLOBULINS PRESENT [None]
  - DNA ANTIBODY POSITIVE [None]
  - DRY EYE [None]
  - EYE INFECTION TOXOPLASMAL [None]
  - HEPATITIS C [None]
  - LEUKOCYTOCLASTIC VASCULITIS [None]
  - LUPUS-LIKE SYNDROME [None]
  - PANCYTOPENIA [None]
  - PHOTOSENSITIVITY REACTION [None]
  - RASH ERYTHEMATOUS [None]
  - REFRACTION DISORDER [None]
  - RHEUMATOID FACTOR POSITIVE [None]
  - SKIN EXFOLIATION [None]
